FAERS Safety Report 5131240-4 (Version None)
Quarter: 2006Q4

REPORT INFORMATION
  Report Type: 
  Country: None (occurrence: None)
  Receive Date: 20061020
  Receipt Date: 20061010
  Transmission Date: 20070319
  Serious: Yes (Hospitalization)
  Sender: FDA-Public Use
  Company Number: BEWYE192211OCT06

PATIENT
  Age: 62 Year
  Sex: Female

DRUGS (7)
  1. ENBREL [Suspect]
     Indication: RHEUMATOID ARTHRITIS
     Route: 058
     Dates: start: 20031224
  2. LEDERTREXATE [Concomitant]
  3. DELTACORTRIL [Concomitant]
  4. EVISTA [Concomitant]
  5. ACTONEL [Concomitant]
  6. CALCIUM CARBONATE [Concomitant]
  7. D-CURE [Concomitant]

REACTIONS (2)
  - CONDITION AGGRAVATED [None]
  - RHEUMATOID ARTHRITIS [None]
